FAERS Safety Report 6249831-6 (Version None)
Quarter: 2009Q2

REPORT INFORMATION
  Report Type: 
  Country: None (occurrence: None)
  Receive Date: 20090629
  Receipt Date: 20090625
  Transmission Date: 20091009
  Serious: Yes (Death, Other)
  Sender: FDA-Public Use
  Company Number: PHHY2009JP25648

PATIENT
  Sex: Female
  Weight: 85 kg

DRUGS (2)
  1. DIOVAN T30230+TAB+HY [Suspect]
     Indication: HYPERTENSION
     Dosage: 80 MG, QD
     Route: 048
     Dates: start: 20080326, end: 20081231
  2. ZYLORIC [Concomitant]
     Dosage: 200 MG, UNK
     Route: 048
     Dates: start: 20081231

REACTIONS (2)
  - BLOOD PRESSURE DIASTOLIC DECREASED [None]
  - MUSCULOSKELETAL PAIN [None]
